FAERS Safety Report 8370000-8 (Version None)
Quarter: 2012Q2

REPORT INFORMATION
  Report Type: 
  Country: None (occurrence: None)
  Receive Date: 20120518
  Receipt Date: 20120514
  Transmission Date: 20120825
  Serious: Yes (Death)
  Sender: FDA-Public Use
  Company Number: NO-SANOFI-AVENTIS-2012SA034249

PATIENT
  Age: 74 Year
  Sex: Male

DRUGS (8)
  1. ENOXAPARIN SODIUM [Suspect]
     Dosage: AT 15.25
     Route: 058
     Dates: start: 20120420
  2. METALYSE [Suspect]
     Dosage: AT 15.18
     Route: 040
     Dates: start: 20120420
  3. PLAVIX [Suspect]
     Dosage: AT 15.20
     Route: 048
     Dates: start: 20120420
  4. ANTITHROMBOTIC AGENTS [Concomitant]
     Indication: THROMBOSIS
  5. ENOXAPARIN SODIUM [Suspect]
     Dosage: AT 15.15
     Route: 040
     Dates: start: 20120420
  6. ACETYLSALICYLIC ACID SRT [Suspect]
     Dosage: AT 15.10
     Route: 048
     Dates: start: 20120420
  7. NITROGLYCERIN [Concomitant]
  8. MORPHINE [Concomitant]

REACTIONS (2)
  - HAEMORRHAGE INTRACRANIAL [None]
  - DEATH [None]
